FAERS Safety Report 5803456-2 (Version None)
Quarter: 2008Q3

REPORT INFORMATION
  Report Type: 
  Country: None (occurrence: None)
  Receive Date: 20080708
  Receipt Date: 20080701
  Transmission Date: 20090109
  Serious: Yes (Life-Threatening, Hospitalization)
  Sender: FDA-Public Use
  Company Number: JP-ROCHE-555835

PATIENT
  Sex: Male
  Weight: 59.7 kg

DRUGS (19)
  1. CAPECITABINE [Suspect]
     Indication: GASTRIC CANCER
     Dosage: GIVEN ON DAY 1-14 DURING A 3 WEEK CYCLE. THERAPY PERMANENTLY DISCONTINUED.
     Route: 048
     Dates: start: 20080328, end: 20080329
  2. BLINDED BEVACIZUMAB [Suspect]
     Indication: GASTRIC CANCER
     Dosage: DOSAGE FORM : INFUSION. GIVEN ON DAY ONE OF A 3 WEEK CYCLE.THERAPY PERMANENTLY DISCONTINUED.
     Route: 042
     Dates: start: 20080328, end: 20080328
  3. CISPLATIN [Suspect]
     Indication: GASTRIC CANCER
     Dosage: DOSAGE REPORTED AS: INFUSION. GIVEN ON DAY 1 OF A 3 WEEK CYCLE. THERAPY PERMANENTLY DISCONTINUED.
     Route: 042
     Dates: start: 20080328, end: 20080328
  4. OXYCODONE HCL [Concomitant]
     Dosage: REPORTED AS OXYCODONE HYDROCHLORIDE HYDRATE.
     Dates: start: 20080324, end: 20080329
  5. OXYCODONE HCL [Concomitant]
     Dates: start: 20080405, end: 20080407
  6. SUCRALFATE [Concomitant]
     Dosage: UNIT REPORTED AS ^P^.
     Dates: start: 20080324, end: 20080329
  7. SUCRALFATE [Concomitant]
     Dates: start: 20080402, end: 20080407
  8. ALUMINUM HYDROXIDE [Concomitant]
     Dosage: REPORTED AS: DRIED ALUMINUM HYDROXIDE GEL/MAGNESIUM HYDROXIDE.
     Dates: start: 20080402, end: 20080407
  9. ALUMINUM HYDROXIDE [Concomitant]
     Dosage: REPORTED AS DRIED ALUMINUM HYDROXIDE. UNIT REPORTED AS ^P^.
     Dates: start: 20080324, end: 20080329
  10. LANSOPRAZOLE [Concomitant]
     Dates: start: 20080402, end: 20080407
  11. LANSOPRAZOLE [Concomitant]
     Dates: start: 20080324, end: 20080329
  12. PROCHLORPERAZINE MALEATE [Concomitant]
     Dates: start: 20080402, end: 20080407
  13. PROCHLORPERAZINE MALEATE [Concomitant]
     Dates: start: 20080324, end: 20080329
  14. MAGNESIUM OXIDE [Concomitant]
     Dates: start: 20080402, end: 20080407
  15. MAGNESIUM OXIDE [Concomitant]
     Dates: start: 20080324, end: 20080329
  16. FLUNITRAZEPAM [Concomitant]
     Dates: start: 20080402, end: 20080407
  17. FLUNITRAZEPAM [Concomitant]
     Dates: start: 20080324, end: 20080329
  18. FERROUS SODIUM CITRATE [Concomitant]
     Dates: start: 20080402, end: 20080407
  19. FERROUS SODIUM CITRATE [Concomitant]
     Dosage: TDD REPORTED AS 100.
     Dates: start: 20080324, end: 20080329

REACTIONS (3)
  - CEREBRAL INFARCTION [None]
  - MALLORY-WEISS SYNDROME [None]
  - PNEUMONIA ASPIRATION [None]
